FAERS Safety Report 9727432 (Version 1)
Quarter: 2013Q4

REPORT INFORMATION
  Report Type: Spontaneous
  Country: US (occurrence: US)
  Receive Date: 20131203
  Receipt Date: 20131203
  Transmission Date: 20140711
  Serious: No
  Sender: FDA-Public Use
  Company Number: US-BAYER-2013-141146

PATIENT
  Age: 76 Year
  Sex: Male

DRUGS (2)
  1. CIPRO [Suspect]
     Indication: PROSTATE INFECTION
     Dosage: UNK
     Route: 048
     Dates: start: 20131114
  2. LIPITOR [Concomitant]
     Dosage: UNK

REACTIONS (2)
  - Skin discolouration [None]
  - Peripheral coldness [None]
